FAERS Safety Report 9096487 (Version 2)
Quarter: 2013Q2

REPORT INFORMATION
  Report Type: Report from Study
  Country: FR (occurrence: FR)
  Receive Date: 20130211
  Receipt Date: 20130617
  Transmission Date: 20140414
  Serious: Yes (Hospitalization, Other)
  Sender: FDA-Public Use
  Company Number: FR-UCBSA-077740

PATIENT
  Age: 73 Year
  Sex: Male
  Weight: 57 kg

DRUGS (6)
  1. CIMZIA [Suspect]
     Indication: RHEUMATOID ARTHRITIS
     Route: 058
     Dates: start: 2012
  2. CIMZIA [Suspect]
     Indication: RHEUMATOID ARTHRITIS
     Route: 058
     Dates: start: 20121009, end: 2012
  3. METOJECT [Concomitant]
     Indication: RHEUMATOID ARTHRITIS
     Dates: start: 20080615
  4. PLAQUENIL [Concomitant]
     Indication: RHEUMATOID ARTHRITIS
     Dates: start: 20080915
  5. CARTREX [Concomitant]
     Indication: RHEUMATOID ARTHRITIS
     Dates: start: 20060615
  6. CORTANCYL [Concomitant]
     Indication: RHEUMATOID ARTHRITIS
     Dates: start: 20060615

REACTIONS (4)
  - Eye haemorrhage [Unknown]
  - Pulmonary fibrosis [Unknown]
  - Chest pain [Unknown]
  - Angina pectoris [Unknown]
